FAERS Safety Report 5648608-X (Version None)
Quarter: 2008Q1

REPORT INFORMATION
  Report Type: 
  Country: None (occurrence: None)
  Receive Date: 20080303
  Receipt Date: 20080303
  Transmission Date: 20080703
  Serious: Yes (Other)
  Sender: FDA-Public Use
  Company Number: None

PATIENT
  Age: 46 Year
  Sex: Female
  Weight: 74.8435 kg

DRUGS (1)
  1. AMITIZA [Suspect]
     Indication: IRRITABLE BOWEL SYNDROME
     Dosage: ONCE PER DAY
     Dates: start: 20080225, end: 20080228

REACTIONS (4)
  - ABDOMINAL PAIN [None]
  - COUGH [None]
  - RESPIRATORY DISORDER [None]
  - THROAT TIGHTNESS [None]
